FAERS Safety Report 6543318-9 (Version None)
Quarter: 2010Q1

REPORT INFORMATION
  Report Type: 
  Country: None (occurrence: None)
  Receive Date: 20100106
  Receipt Date: 20091219
  Transmission Date: 20100710
  Serious: No
  Sender: FDA-Public Use
  Company Number: 2009-00900

PATIENT
  Age: 78 Year
  Sex: Male
  Weight: 99.7913 kg

DRUGS (6)
  1. COLD REMEDY GEL SWABS [Suspect]
     Dosage: SPORADIC - 3 DAYS
     Dates: start: 20091215, end: 20091218
  2. COLD REMEDY RAPIDMELTS WITH VITAMIN C [Suspect]
     Dosage: SPORADIC - 3 DAYS
     Dates: start: 20091215, end: 20091218
  3. LIPITOR [Concomitant]
  4. SPIRONOLACTONE [Concomitant]
  5. HYDROCHLOROTHIAZIDE [Concomitant]
  6. MONOPRIL [Concomitant]

REACTIONS (1)
  - AGEUSIA [None]
